FAERS Safety Report 9919357 (Version 2)
Quarter: 2014Q2

REPORT INFORMATION
  Report Type: Spontaneous
  Country: US (occurrence: US)
  Receive Date: 20140224
  Receipt Date: 20140519
  Transmission Date: 20141212
  Serious: No
  Sender: FDA-Public Use
  Company Number: US-009507513-1402USA010152

PATIENT
  Age: 22 Year
  Sex: Female
  Weight: 69.39 kg

DRUGS (1)
  1. NEXPLANON [Suspect]
     Indication: CONTRACEPTION
     Dosage: 1 ROD, ONCE
     Route: 058
     Dates: start: 20140204

REACTIONS (3)
  - Rash pruritic [Recovered/Resolved]
  - Influenza like illness [Unknown]
  - Oropharyngeal pain [Not Recovered/Not Resolved]
